FAERS Safety Report 5364394-5 (Version None)
Quarter: 2007Q2

REPORT INFORMATION
  Report Type: 
  Country: None (occurrence: None)
  Receive Date: 20070618
  Receipt Date: 20070608
  Transmission Date: 20071010
  Serious: Yes (Death, Other)
  Sender: FDA-Public Use
  Company Number: 163-21880-07060549

PATIENT

DRUGS (2)
  1. REVLIMID [Suspect]
     Indication: MANTLE CELL LYMPHOMA
     Dosage: 10 - 25MG, DAILY ON DAYS 1-21 OF A 28 DAY CYCLE, ORAL
     Route: 048
  2. RITUXIMAB (RITUXIMAB) [Suspect]
     Indication: MANTLE CELL LYMPHOMA
     Dosage: 375 MG/M2, WEEKLY FOR 4 WEEKS, INTRAVENOUS
     Route: 042

REACTIONS (10)
  - ANAEMIA [None]
  - BLOOD LACTATE DEHYDROGENASE INCREASED [None]
  - CONSTIPATION [None]
  - DIARRHOEA [None]
  - FEBRILE NEUTROPENIA [None]
  - HAEMATOTOXICITY [None]
  - HYPERCALCAEMIA [None]
  - MYALGIA [None]
  - SEPSIS [None]
  - THROMBOCYTOPENIA [None]
